FAERS Safety Report 4365060-5 (Version None)
Quarter: 2004Q2

REPORT INFORMATION
  Report Type: 
  Country: None (occurrence: None)
  Receive Date: 20040521
  Receipt Date: 20040430
  Transmission Date: 20050107
  Serious: Yes (Other)
  Sender: FDA-Public Use
  Company Number: EWC040438990

PATIENT
  Age: 32 Year
  Sex: Female

DRUGS (8)
  1. CEFACLOR [Suspect]
     Indication: POSTOPERATIVE CARE
     Dosage: 750 MG/2 DAY
     Dates: start: 20040407, end: 20040409
  2. CEFACLOR [Suspect]
     Indication: PROPHYLAXIS
     Dosage: 750 MG/2 DAY
     Dates: start: 20040407, end: 20040409
  3. OMEPRAZOLE [Concomitant]
  4. DICLOFENAC SODIUM [Concomitant]
  5. VITAMIN B COMPLEX CAP [Concomitant]
  6. DEXTROSE 10% [Concomitant]
  7. CIPROFLOXACIN [Concomitant]
  8. ACETAMINOPHEN [Concomitant]

REACTIONS (3)
  - DYSPHAGIA [None]
  - GLOSSITIS [None]
  - STOMATITIS [None]
